FAERS Safety Report 9357342 (Version 1)
Quarter: 2013Q2

REPORT INFORMATION
  Report Type: Spontaneous
  Country: US (occurrence: US)
  Receive Date: 20130620
  Receipt Date: 20130620
  Transmission Date: 20140414
  Serious: No
  Sender: FDA-Public Use
  Company Number: US-MYLANLABS-2012S1021807

PATIENT
  Age: 34 Year
  Sex: Male

DRUGS (4)
  1. HYDROXYCHLOROQUINE SULFATE [Suspect]
     Indication: LYME DISEASE
     Route: 048
     Dates: start: 201207, end: 201210
  2. HYDROXYCHLOROQUINE SULFATE [Suspect]
     Indication: OFF LABEL USE
     Route: 048
     Dates: start: 201207, end: 201210
  3. DOXYCYCLINE [Concomitant]
     Indication: LYME DISEASE
     Dates: start: 201204
  4. BUSPAR [Concomitant]
     Indication: ANXIETY
     Dates: start: 201205

REACTIONS (2)
  - Migraine [Recovered/Resolved]
  - Vision blurred [Recovered/Resolved]
